FAERS Safety Report 8298133-5 (Version None)
Quarter: 2012Q2

REPORT INFORMATION
  Report Type: 
  Country: None (occurrence: None)
  Receive Date: 20120419
  Receipt Date: 20120411
  Transmission Date: 20120825
  Serious: Yes (Other)
  Sender: FDA-Public Use
  Company Number: US-AMGEN-QUU429880

PATIENT
  Age: 65 Year
  Sex: Female

DRUGS (1)
  1. ENBREL [Suspect]
     Indication: ANKYLOSING SPONDYLITIS
     Dosage: 50 MG, QWK
     Route: 058
     Dates: start: 20081105

REACTIONS (4)
  - HAEMORRHAGIC DIATHESIS [None]
  - GAIT DISTURBANCE [None]
  - ANKYLOSING SPONDYLITIS [None]
  - INJECTION SITE HAEMATOMA [None]
